FAERS Safety Report 7245950-6 (Version None)
Quarter: 2011Q1

REPORT INFORMATION
  Report Type: 
  Country: None (occurrence: None)
  Receive Date: 20110126
  Receipt Date: 20110112
  Transmission Date: 20110831
  Serious: Yes (Other)
  Sender: FDA-Public Use
  Company Number: GB-WATSON-2011-00822

PATIENT
  Age: 14 Year
  Sex: Female

DRUGS (1)
  1. ALBUTEROL SULFATE AUTOHALER [Suspect]
     Indication: ASTHMA
     Dosage: 10 DOSES AT ONE TIME
     Route: 061

REACTIONS (4)
  - SKIN HYPERPIGMENTATION [None]
  - SKIN HYPOPIGMENTATION [None]
  - DEVICE MISUSE [None]
  - INCORRECT ROUTE OF DRUG ADMINISTRATION [None]
